FAERS Safety Report 5657382-2 (Version None)
Quarter: 2008Q1

REPORT INFORMATION
  Report Type: 
  Country: None (occurrence: None)
  Receive Date: 20080310
  Receipt Date: 20080227
  Transmission Date: 20080703
  Serious: Yes (Other)
  Sender: FDA-Public Use
  Company Number: PHHY2008JP02288

PATIENT
  Sex: Female

DRUGS (3)
  1. ENDOXAN [Concomitant]
     Indication: STEM CELL TRANSPLANT
     Route: 042
     Dates: start: 20050101
  2. METHOTREXATE [Concomitant]
     Indication: STEM CELL TRANSPLANT
     Route: 065
     Dates: start: 20050101
  3. CYCLOSPORINE [Suspect]
     Indication: STEM CELL TRANSPLANT
     Dates: start: 20050101

REACTIONS (3)
  - ADENOVIRAL HAEMORRHAGIC CYSTITIS [None]
  - CYTOMEGALOVIRUS INFECTION [None]
  - PEMPHIGOID [None]
